FAERS Safety Report 8408260-7 (Version None)
Quarter: 2012Q2

REPORT INFORMATION
  Report Type: 
  Country: None (occurrence: None)
  Receive Date: 20120604
  Receipt Date: 20120530
  Transmission Date: 20120825
  Serious: Yes (Other)
  Sender: FDA-Public Use
  Company Number: GB-GENZYME-CLOF-1001824

PATIENT
  Sex: Female
  Weight: 44.8 kg

DRUGS (2)
  1. CLOFARABINE [Suspect]
     Indication: ACUTE LEUKAEMIA
     Dosage: 29 MG, QDX5
     Route: 065
     Dates: start: 20071003, end: 20071007
  2. DAUNORUBICIN HCL [Suspect]
     Indication: ACUTE LEUKAEMIA
     Dosage: 70 MG, QOD DAY 1, 3, 5
     Route: 065
     Dates: start: 20071003, end: 20071007

REACTIONS (1)
  - GLOMERULAR FILTRATION RATE DECREASED [None]
